FAERS Safety Report 18647751 (Version 1)
Quarter: 2020Q4

REPORT INFORMATION
  Report Type: Spontaneous
  Country: US (occurrence: US)
  Receive Date: 20201222
  Receipt Date: 20201222
  Transmission Date: 20210114
  Serious: No
  Sender: FDA-Public Use
  Company Number: US-RECKITT BENCKISER HEALTHCARE INT LIMITED-RB-83457-2020

PATIENT
  Age: 3 Year
  Sex: Female
  Weight: 14.97 kg

DRUGS (1)
  1. DELSYM [Suspect]
     Active Substance: DEXTROMETHORPHAN
     Indication: COUGH
     Dosage: GIVN LITTLE MORE THAN 2.5 ML AT BID FREQUENCY
     Route: 048
     Dates: start: 20200204

REACTIONS (2)
  - Accidental exposure to product by child [Unknown]
  - Contraindicated product administered [Unknown]

NARRATIVE: CASE EVENT DATE: 20200204
